FAERS Safety Report 4303988-2 (Version None)
Quarter: 2004Q1

REPORT INFORMATION
  Report Type: 
  Country: None (occurrence: None)
  Receive Date: 20040223
  Receipt Date: 20031201
  Transmission Date: 20041129
  Serious: No
  Sender: FDA-Public Use
  Company Number: PHEH2003US10338

PATIENT
  Age: 75 Year
  Sex: Male

DRUGS (4)
  1. ZELNORM [Suspect]
     Indication: IRRITABLE BOWEL SYNDROME
     Dosage: 1.5X 6 MG/BID
     Dates: start: 20030901, end: 20031001
  2. HYTRIN [Concomitant]
  3. PREVACID [Concomitant]
  4. SEPTRA (SULFAMETHOXAZOLE) [Concomitant]

REACTIONS (1)
  - ERECTILE DYSFUNCTION [None]
